FAERS Safety Report 6525999-9 (Version None)
Quarter: 2009Q4

REPORT INFORMATION
  Report Type: 
  Country: None (occurrence: None)
  Receive Date: 20091224
  Receipt Date: 20091214
  Transmission Date: 20100525
  Serious: Yes (Death)
  Sender: FDA-Public Use
  Company Number: 2009003848

PATIENT
  Age: 75 Year
  Sex: Male

DRUGS (2)
  1. ERLOTINIB HYDROCHLORIDE [Suspect]
     Indication: NON-SMALL CELL LUNG CANCER
     Dosage: (150 MG, QD), ORAL
     Route: 048
     Dates: start: 20090912, end: 20091129
  2. CAPECITABINE [Suspect]
     Indication: NON-SMALL CELL LUNG CANCER
     Dosage: (1500 MG, BID), ORAL
     Route: 048
     Dates: start: 20090912, end: 20091129

REACTIONS (2)
  - CHEST DISCOMFORT [None]
  - RESPIRATORY FAILURE [None]
